FAERS Safety Report 8590372-9 (Version None)
Quarter: 2012Q3

REPORT INFORMATION
  Report Type: 
  Country: None (occurrence: None)
  Receive Date: 20120813
  Receipt Date: 20120731
  Transmission Date: 20120928
  Serious: Yes (Death, Other)
  Sender: FDA-Public Use
  Company Number: LT-ROCHE-743410

PATIENT

DRUGS (2)
  1. METHYLPREDNISOLONE [Suspect]
     Indication: CHRONIC LYMPHOCYTIC LEUKAEMIA
     Dosage: 1 G/M2 DAILY FOR 5 CONSECUTIVE DAYS OF EACH TREATMENT COURSE: 6 COURSE
  2. MABTHERA [Suspect]
     Indication: CHRONIC LYMPHOCYTIC LEUKAEMIA
     Dosage: FOR 6 COURSES.
     Route: 042

REACTIONS (11)
  - FATIGUE [None]
  - ANAEMIA [None]
  - SUDDEN DEATH [None]
  - NEUTROPENIA [None]
  - INFECTION [None]
  - HYPERKALAEMIA [None]
  - FEBRILE NEUTROPENIA [None]
  - CARDIAC FAILURE CONGESTIVE [None]
  - LUNG INFECTION [None]
  - HYPERGLYCAEMIA [None]
  - THROMBOCYTOPENIA [None]
